FAERS Safety Report 10196204 (Version 3)
Quarter: 2014Q3

REPORT INFORMATION
  Report Type: Spontaneous
  Country: IT (occurrence: IT)
  Receive Date: 20140527
  Receipt Date: 20140801
  Transmission Date: 20150326
  Serious: Yes (Other)
  Sender: FDA-Public Use
  Company Number: IT-ROCHE-1408610

PATIENT
  Age: 91 Year
  Sex: Female
  Weight: 53 kg

DRUGS (6)
  1. LORTAAN [Concomitant]
     Active Substance: LOSARTAN POTASSIUM
     Route: 065
  2. GARDENALE [Concomitant]
     Active Substance: PHENOBARBITAL
     Indication: EPILEPSY
     Route: 065
  3. MABTHERA [Suspect]
     Active Substance: RITUXIMAB
     Indication: CHRONIC LYMPHOCYTIC LEUKAEMIA
     Route: 042
     Dates: start: 20140512, end: 20140512
  4. PERFALGAN [Concomitant]
     Active Substance: ACETAMINOPHEN
  5. FLEBOCORTID RICHTER [Concomitant]
     Route: 065
  6. TRIMETON (ITALY) [Concomitant]

REACTIONS (2)
  - Laryngeal oedema [Recovered/Resolved]
  - Hypertensive crisis [Recovered/Resolved]

NARRATIVE: CASE EVENT DATE: 20140512
